FAERS Safety Report 10505008 (Version 1)
Quarter: 2014Q3

REPORT INFORMATION
  Report Type: Spontaneous
  Country: US (occurrence: None)
  Receive Date: 20140926
  Receipt Date: 20140926
  Transmission Date: 20150326
  Serious: No
  Sender: FDA-Public Use
  Company Number: 1000069103

PATIENT
  Age: 54 Year
  Sex: Female

DRUGS (8)
  1. ADVAIR (FLUTICASONE, SALMETEROL) (FLUTICASONE, SALMETEROL) [Concomitant]
  2. LINZESS [Suspect]
     Active Substance: LINACLOTIDE
     Indication: IRRITABLE BOWEL SYNDROME
     Route: 048
     Dates: start: 20140317
  3. LORATADINE (LORATADINE) (LORATADINE) [Concomitant]
     Active Substance: LORATADINE
  4. MELOXICAM (MELOXICAM) (MELOXICAM) [Concomitant]
     Active Substance: MELOXICAM
  5. HUMIRA [Concomitant]
     Active Substance: ADALIMUMAB
  6. ALBUTEROL (ALBUTEROL) (ALBUTEROL) [Concomitant]
     Active Substance: ALBUTEROL
  7. ROBAXIN (METHOCARBAMOL) (METHOCARBAMOL) [Concomitant]
  8. ULTRACET (TRAMADOL, ACETAMINOPHEN) (TRAMADOL, ACETAMINOPHEN) [Concomitant]

REACTIONS (3)
  - Abdominal pain [None]
  - Abdominal distension [None]
  - Nausea [None]

NARRATIVE: CASE EVENT DATE: 201403
